FAERS Safety Report 25455401 (Version 1)
Quarter: 2025Q2

REPORT INFORMATION
  Report Type: Report from Study
  Country: AR (occurrence: AR)
  Receive Date: 20250619
  Receipt Date: 20250619
  Transmission Date: 20250717
  Serious: Yes (Other)
  Sender: BIOGEN
  Company Number: AR-BIOGEN-2025BI01313867

PATIENT
  Sex: Female

DRUGS (1)
  1. SPINRAZA [Suspect]
     Active Substance: NUSINERSEN
     Indication: Spinal muscular atrophy
     Dosage: LAST ADMINISTRATION: 19JUL2023 DUE TO PERSONAL REASONS
     Route: 050
     Dates: start: 20220316, end: 20230719

REACTIONS (1)
  - Spinal disorder [Unknown]
